FAERS Safety Report 4934945-0 (Version None)
Quarter: 2006Q1

REPORT INFORMATION
  Report Type: 
  Country: None (occurrence: None)
  Receive Date: 20060306
  Receipt Date: 20060306
  Transmission Date: 20060701
  Serious: Yes (Other)
  Sender: FDA-Public Use
  Company Number: None

PATIENT
  Sex: Female
  Weight: 56.6996 kg

DRUGS (1)
  1. HYDROMORPHONE HCL [Suspect]
     Indication: PAIN MANAGEMENT
     Dosage: 5 MG -2.5 ML- PER HOUR IV DRIP
     Route: 041
     Dates: start: 20051222, end: 20060303

REACTIONS (4)
  - DEVICE FAILURE [None]
  - INADEQUATE ANALGESIA [None]
  - INCORRECT DOSE ADMINISTERED [None]
  - UNDERDOSE [None]
